FAERS Safety Report 5250200-6 (Version None)
Quarter: 2007Q1

REPORT INFORMATION
  Report Type: 
  Country: None (occurrence: None)
  Receive Date: 20070228
  Receipt Date: 20060223
  Transmission Date: 20070707
  Serious: No
  Sender: FDA-Public Use
  Company Number: US-GLAXOSMITHKLINE-A0594958A

PATIENT
  Age: 56 Year
  Sex: Female

DRUGS (6)
  1. LAMICTAL [Suspect]
     Dosage: 25MG AT NIGHT
     Route: 048
     Dates: start: 20020213
  2. DILANTIN [Concomitant]
  3. VITAMIN [Concomitant]
  4. PROGESTERONE [Concomitant]
  5. KEPPRA [Concomitant]
  6. TRILEPTAL [Concomitant]

REACTIONS (5)
  - CRYING [None]
  - DEPRESSION [None]
  - DYSPNOEA [None]
  - HYPOAESTHESIA [None]
  - PAIN [None]
